FAERS Safety Report 24678055 (Version 4)
Quarter: 2025Q2

REPORT INFORMATION
  Report Type: Report from Study
  Country: JP (occurrence: JP)
  Receive Date: 20241129
  Receipt Date: 20250610
  Transmission Date: 20250717
  Serious: Yes (Hospitalization, Other)
  Sender: ROCHE
  Company Number: JP-CHUGAI-2024040794

PATIENT
  Age: 56 Year
  Sex: Male

DRUGS (5)
  1. PIASKY [Suspect]
     Active Substance: CROVALIMAB-AKKZ
     Indication: Paroxysmal nocturnal haemoglobinuria
     Route: 058
     Dates: start: 20241024, end: 20241114
  2. PIASKY [Suspect]
     Active Substance: CROVALIMAB-AKKZ
     Route: 065
  3. METHENOLONE ACETATE [Concomitant]
     Active Substance: METHENOLONE ACETATE
     Route: 065
  4. ACETAMINOPHEN [Concomitant]
     Active Substance: ACETAMINOPHEN
     Route: 065
  5. LOXOPROFEN SODIUM DIHYDRATE [Concomitant]
     Active Substance: LOXOPROFEN SODIUM DIHYDRATE
     Route: 065

REACTIONS (6)
  - Hepatic function abnormal [Recovered/Resolved]
  - Jaundice [Recovered/Resolved]
  - Anaemia [Recovered/Resolved]
  - Type III immune complex mediated reaction [Recovered/Resolved]
  - Renal impairment [Recovered/Resolved]
  - Cellulitis [Recovered/Resolved]

NARRATIVE: CASE EVENT DATE: 20241120
